FAERS Safety Report 9059113 (Version 1)
Quarter: 2013Q1

REPORT INFORMATION
  Report Type: Spontaneous
  Country: US (occurrence: US)
  Receive Date: 20130211
  Receipt Date: 20130211
  Transmission Date: 20140127
  Serious: No
  Sender: FDA-Public Use
  Company Number: US-BRISTOL-MYERS SQUIBB COMPANY-16889883

PATIENT
  Age: 59 Year
  Sex: Male

DRUGS (4)
  1. METFORMIN HCL [Suspect]
     Indication: TYPE 2 DIABETES MELLITUS
  2. LANTUS [Suspect]
     Indication: TYPE 2 DIABETES MELLITUS
     Dosage: 1DF:100 IU/ML?PARENTRAL INJECTION SOLN?DOSE INCREASED TO 80 UNITS
     Route: 058
     Dates: start: 201205
  3. AMARYL [Suspect]
     Indication: TYPE 2 DIABETES MELLITUS
     Dates: start: 201205
  4. JANUVIA [Suspect]
     Indication: TYPE 2 DIABETES MELLITUS
     Dosage: 1DF:50 UNITS.?STARTED AS 100 UNITS AND THEN REDUCED TO 50 UNITS?INTER AND THEN RESTARTED

REACTIONS (1)
  - Blood glucose increased [Unknown]
